FAERS Safety Report 5517336-3 (Version None)
Quarter: 2007Q4

REPORT INFORMATION
  Report Type: 
  Country: None (occurrence: None)
  Receive Date: 20071114
  Receipt Date: 20071024
  Transmission Date: 20080405
  Serious: No
  Sender: FDA-Public Use
  Company Number: A0689523A

PATIENT
  Sex: Female

DRUGS (3)
  1. COMMIT [Suspect]
  2. NICOTINE [Suspect]
  3. ANTIDEPRESSANT [Concomitant]

REACTIONS (4)
  - APPLICATION SITE ERYTHEMA [None]
  - HYPERAESTHESIA [None]
  - INTENTIONAL DRUG MISUSE [None]
  - ORAL PAIN [None]
